FAERS Safety Report 5358846-1 (Version None)
Quarter: 2007Q2

REPORT INFORMATION
  Report Type: 
  Country: None (occurrence: None)
  Receive Date: 20070615
  Receipt Date: 20070608
  Transmission Date: 20071010
  Serious: Yes (Disabling)
  Sender: FDA-Public Use
  Company Number: US-GENENTECH-242746

PATIENT

DRUGS (2)
  1. TNKASE [Suspect]
     Indication: PERIPHERAL ISCHAEMIA
     Dosage: 0.25 MG/HR, UNK
     Route: 013
  2. HEPARIN [Suspect]
     Indication: DRUG USE FOR UNKNOWN INDICATION

REACTIONS (1)
  - AMPUTATION [None]
